FAERS Safety Report 24323140 (Version 1)
Quarter: 2024Q3

REPORT INFORMATION
  Report Type: Spontaneous
  Country: US (occurrence: None)
  Receive Date: 20240914
  Receipt Date: 20240914
  Transmission Date: 20241016
  Serious: Yes (Other)
  Sender: Public
  Company Number: None

PATIENT
  Age: 31 Year
  Sex: Female
  Weight: 132.75 kg

DRUGS (7)
  1. COSENTYX [Suspect]
     Active Substance: SECUKINUMAB
     Indication: Psoriatic arthropathy
     Dosage: 1 INJECTION 1 EVERY 4 WEEKS SUABCUTANEOUS ?
     Route: 058
     Dates: start: 20240415, end: 20240830
  2. COSENTYX [Suspect]
     Active Substance: SECUKINUMAB
     Indication: Psoriasis
  3. GABAPENTIN [Concomitant]
     Active Substance: GABAPENTIN
  4. FERROUS SULFATE [Concomitant]
     Active Substance: FERROUS SULFATE
  5. HYDROXYNE [Concomitant]
  6. CALCIPOTR... [Concomitant]
  7. CLOBATASOL [Concomitant]

REACTIONS (4)
  - Blister [None]
  - Scab [None]
  - Skin exfoliation [None]
  - Gait disturbance [None]

NARRATIVE: CASE EVENT DATE: 20240910
